FAERS Safety Report 9766960 (Version 4)
Quarter: 2014Q2

REPORT INFORMATION
  Report Type: Spontaneous
  Country: GB (occurrence: GB)
  Receive Date: 20131217
  Receipt Date: 20140509
  Transmission Date: 20141212
  Serious: Yes (Hospitalization)
  Sender: FDA-Public Use
  Company Number: GB-NOVOPROD-394845

PATIENT
  Age: 54 Year
  Sex: Female

DRUGS (2)
  1. NOVOMIX 30 PENFILL [Suspect]
     Indication: DIABETES MELLITUS
     Dosage: TWICE A DAY
     Route: 065
  2. NOVOMIX 30 PENFILL [Suspect]
     Dosage: 4 TIMES A DAY
     Route: 065
     Dates: end: 20131104

REACTIONS (6)
  - General physical health deterioration [Unknown]
  - Stress [Unknown]
  - Chest pain [Unknown]
  - Impaired work ability [Unknown]
  - Diabetes mellitus inadequate control [Unknown]
  - Blood glucose abnormal [Unknown]
